FAERS Safety Report 13746118 (Version 1)
Quarter: 2017Q3

REPORT INFORMATION
  Report Type: Spontaneous
  Country: US (occurrence: US)
  Receive Date: 20170712
  Receipt Date: 20170712
  Transmission Date: 20171127
  Serious: Yes (Death)
  Sender: FDA-Public Use
  Company Number: None

PATIENT
  Age: 58 Year
  Sex: Male
  Weight: 107.8 kg

DRUGS (2)
  1. LENALIDOMIDE [Suspect]
     Active Substance: LENALIDOMIDE
     Indication: LYMPHOMA
     Dosage: 20MG DAYS 1-14 ORAL
     Route: 048
     Dates: start: 20170627, end: 20170705
  2. R-ICE THERAPY [Concomitant]

REACTIONS (4)
  - Neutropenia [None]
  - Pancytopenia [None]
  - Thrombocytopenia [None]
  - Disease progression [None]

NARRATIVE: CASE EVENT DATE: 20170712
